FAERS Safety Report 8125075-8 (Version None)
Quarter: 2012Q1

REPORT INFORMATION
  Report Type: 
  Country: None (occurrence: None)
  Receive Date: 20120209
  Receipt Date: 20120207
  Transmission Date: 20120608
  Serious: Yes (Disabling, Other)
  Sender: FDA-Public Use
  Company Number: CY-BAYER-2012-012559

PATIENT
  Age: 48 Year
  Sex: Male
  Weight: 85 kg

DRUGS (2)
  1. DOXYCYCLINE [Concomitant]
     Dosage: UNK
     Route: 048
  2. CIPROFLOXACIN HYDROCHLORIDE [Suspect]
     Indication: URETHRITIS
     Dosage: UNK
     Route: 048
     Dates: start: 20120203, end: 20120206

REACTIONS (6)
  - TENDON RUPTURE [None]
  - PYREXIA [None]
  - OEDEMA PERIPHERAL [None]
  - ABASIA [None]
  - PAIN IN EXTREMITY [None]
  - DRY MOUTH [None]
